FAERS Safety Report 7197444-4 (Version None)
Quarter: 2010Q4

REPORT INFORMATION
  Report Type: 
  Country: None (occurrence: None)
  Receive Date: 20101227
  Receipt Date: 20101216
  Transmission Date: 20110411
  Serious: Yes (Hospitalization)
  Sender: FDA-Public Use
  Company Number: FR-ASTRAZENECA-2010SE59872

PATIENT
  Sex: Female

DRUGS (5)
  1. MOPRAL [Suspect]
     Route: 048
     Dates: start: 20060101
  2. IMUREL [Suspect]
     Indication: CROHN'S DISEASE
     Route: 048
     Dates: start: 20090101
  3. FIVASA [Suspect]
     Indication: CROHN'S DISEASE
     Route: 048
     Dates: start: 20060101
  4. THERALENE [Suspect]
     Route: 048
     Dates: start: 20100712, end: 20100719
  5. ZELITREX [Suspect]
     Indication: HERPES VIRUS INFECTION
     Route: 048
     Dates: start: 20100708, end: 20100713

REACTIONS (1)
  - FEBRILE NEUTROPENIA [None]
